FAERS Safety Report 23731133 (Version 2)
Quarter: 2024Q2

REPORT INFORMATION
  Report Type: Spontaneous
  Country: US (occurrence: US)
  Receive Date: 20240411
  Receipt Date: 20240422
  Transmission Date: 20240715
  Serious: No
  Sender: FDA-Public Use
  Company Number: US-ABBVIE-5710854

PATIENT
  Sex: Male

DRUGS (1)
  1. UPADACITINIB [Suspect]
     Active Substance: UPADACITINIB
     Indication: Rheumatoid arthritis
     Route: 048

REACTIONS (10)
  - Arthropod bite [Unknown]
  - Rash [Unknown]
  - Dermatitis acneiform [Unknown]
  - Weight abnormal [Unknown]
  - Therapeutic product effect incomplete [Unknown]
  - Skin exfoliation [Unknown]
  - Dyspnoea [Unknown]
  - Anaemia [Unknown]
  - Asthma [Unknown]
  - Wheezing [Unknown]
